FAERS Safety Report 7092179-0 (Version None)
Quarter: 2010Q4

REPORT INFORMATION
  Report Type: 
  Country: None (occurrence: None)
  Receive Date: 20101109
  Receipt Date: 20101105
  Transmission Date: 20110411
  Serious: Yes (Hospitalization)
  Sender: FDA-Public Use
  Company Number: HR-ROXANE LABORATORIES, INC.-2010-RO-01464RO

PATIENT
  Age: 42 Year
  Sex: Male

DRUGS (7)
  1. LITHIUM CARBONATE [Suspect]
     Dosage: 900 MG
  2. LORAZEPAM [Suspect]
  3. RISPERIDONE [Suspect]
     Dosage: 1 MG
  4. RISPERIDONE [Suspect]
     Dosage: 2 MG
  5. DIAZEPAM [Suspect]
     Dosage: 60 MG
     Route: 048
  6. HALOPERIDOL [Suspect]
     Dosage: 10 MG
  7. CLOZAPINE [Suspect]
     Dosage: 25 MG

REACTIONS (1)
  - NEUROLEPTIC MALIGNANT SYNDROME [None]
